FAERS Safety Report 4427026-6 (Version None)
Quarter: 2004Q3

REPORT INFORMATION
  Report Type: 
  Country: None (occurrence: None)
  Receive Date: 20040816
  Receipt Date: 20020219
  Transmission Date: 20050211
  Serious: Yes (Hospitalization, Disabling, Other)
  Sender: FDA-Public Use
  Company Number: US-MERCK-0202USA02142

PATIENT
  Age: 57 Year
  Sex: Male
  Weight: 135 kg

DRUGS (9)
  1. ALLOPURINOL [Concomitant]
     Route: 065
  2. KEFLEX [Concomitant]
     Route: 065
     Dates: end: 20010809
  3. HYDROCHLOROTHIAZIDE [Concomitant]
     Route: 065
  4. INDOCIN [Concomitant]
     Route: 048
     Dates: end: 20010809
  5. SYNTHROID [Concomitant]
     Route: 065
  6. VIOXX [Suspect]
     Indication: GOUT
     Route: 048
     Dates: start: 20010809, end: 20010815
  7. VIOXX [Suspect]
     Route: 048
     Dates: start: 20010816
  8. VIOXX [Suspect]
     Indication: GOUTY ARTHRITIS
     Route: 048
     Dates: start: 20010809, end: 20010815
  9. VIOXX [Suspect]
     Route: 048
     Dates: start: 20010816

REACTIONS (8)
  - ATRIAL FIBRILLATION [None]
  - CARDIAC FAILURE CONGESTIVE [None]
  - GASTROOESOPHAGEAL REFLUX DISEASE [None]
  - HYPERCHOLESTEROLAEMIA [None]
  - MYOCARDIAL INFARCTION [None]
  - NAUSEA [None]
  - SINUSITIS [None]
  - VOMITING [None]
